FAERS Safety Report 8820404 (Version 4)
Quarter: 2013Q1

REPORT INFORMATION
  Report Type: Report from Study
  Country: FR (occurrence: FR)
  Receive Date: 20121002
  Receipt Date: 20130222
  Transmission Date: 20140127
  Serious: Yes (Death, Hospitalization)
  Sender: FDA-Public Use
  Company Number: FR-009507513-1209FRA010029

PATIENT
  Age: 49 Year
  Sex: Male

DRUGS (13)
  1. BOCEPREVIR [Suspect]
     Indication: HEPATITIS C
     Dosage: 800 MG, TID
     Route: 048
     Dates: start: 20120816, end: 20120921
  2. VIRAFERONPEG [Suspect]
     Indication: HEPATITIS C
     Dosage: 1.5 MICROGRAM PER KILOGRAM, QW
     Route: 058
     Dates: start: 20120719, end: 20120920
  3. REBETOL [Suspect]
     Indication: HEPATITIS C
     Dosage: 600 MG, BID
     Route: 048
     Dates: start: 20120719, end: 20120921
  4. REBETOL [Suspect]
     Dosage: 800 MG, UNK
     Dates: start: 20120920, end: 20120921
  5. AVLOCARDYL [Concomitant]
     Indication: PROPHYLAXIS
     Dosage: 40 MG, BID
     Dates: start: 20120408
  6. LASILIX [Concomitant]
     Indication: PROPHYLAXIS
     Dosage: 40 MG, QD
     Dates: end: 20120704
  7. INEXIUM [Concomitant]
     Indication: GASTROOESOPHAGEAL REFLUX DISEASE
  8. DIFFU-K [Concomitant]
     Indication: BLOOD POTASSIUM DECREASED
     Dosage: 1250 MG, Q8H
     Dates: start: 20120823, end: 20120830
  9. DIFFU-K [Concomitant]
     Dosage: 1200 UNK, UNK
     Dates: start: 20120830, end: 20120904
  10. OMEPRAZOLE [Concomitant]
     Indication: OESOPHAGEAL ULCER
     Dosage: UNK
     Dates: start: 20120904
  11. NOROXINE [Concomitant]
     Indication: PROPHYLAXIS
     Dosage: 400 MG, QD
     Dates: start: 20120907
  12. NEORECORMON [Concomitant]
     Indication: ANAEMIA
     Dosage: 30000 IU, QW
     Dates: start: 20120809
  13. NEORECORMON [Concomitant]
     Indication: HEPATOPULMONARY SYNDROME

REACTIONS (8)
  - Ascites [Not Recovered/Not Resolved]
  - Anaemia [Not Recovered/Not Resolved]
  - Dyspnoea [Not Recovered/Not Resolved]
  - Intra-abdominal haemorrhage [Fatal]
  - Haemostasis [Fatal]
  - Haematoma [Fatal]
  - Cerebrovascular accident [Fatal]
  - Brain herniation [Fatal]
